FAERS Safety Report 6500048-7 (Version None)
Quarter: 2009Q4

REPORT INFORMATION
  Report Type: 
  Country: None (occurrence: None)
  Receive Date: 20091216
  Receipt Date: 20091209
  Transmission Date: 20100525
  Serious: Yes (Death)
  Sender: FDA-Public Use
  Company Number: US-JNJFOC-20091203530

PATIENT
  Sex: Male
  Weight: 67.13 kg

DRUGS (2)
  1. PROPULSID [Suspect]
     Indication: ASPIRATION
     Route: 048
     Dates: start: 20020101, end: 20090101
  2. PROPULSID [Suspect]
     Indication: GASTROOESOPHAGEAL REFLUX DISEASE
     Route: 048
     Dates: start: 20020101, end: 20090101

REACTIONS (1)
  - CHOLECYSTITIS ACUTE [None]
